FAERS Safety Report 7667583-X (Version None)
Quarter: 2011Q3

REPORT INFORMATION
  Report Type: 
  Country: None (occurrence: None)
  Receive Date: 20110806
  Receipt Date: 20110516
  Transmission Date: 20111222
  Serious: No
  Sender: FDA-Public Use
  Company Number: US-ABBOTT-11P-163-0726292-00

PATIENT
  Sex: Female
  Weight: 62.198 kg

DRUGS (9)
  1. METOPROLOL TARTRATE [Concomitant]
     Indication: HYPERTENSION
  2. PLAVIX [Concomitant]
     Indication: ARTERIAL DISORDER
  3. ASPIRIN [Concomitant]
     Indication: CARDIAC DISORDER
  4. RAMIPRIL [Concomitant]
     Indication: PROPHYLAXIS
  5. NIASPAN [Suspect]
     Indication: CAROTID ARTERY DISEASE
     Route: 048
  6. NORVASC [Concomitant]
     Indication: CARDIAC DISORDER
  7. CRESTOR [Concomitant]
     Indication: CAROTID ARTERY DISEASE
  8. ZETIA [Concomitant]
     Indication: PRODUCT USED FOR UNKNOWN INDICATION
  9. RAMIPRIL [Concomitant]
     Indication: RENAL DISORDER

REACTIONS (4)
  - ERYTHEMA [None]
  - THROAT IRRITATION [None]
  - FEELING HOT [None]
  - PRURITUS GENERALISED [None]
